FAERS Safety Report 20351722 (Version 1)
Quarter: 2022Q1

REPORT INFORMATION
  Report Type: Spontaneous
  Country: US (occurrence: US)
  Receive Date: 20220119
  Receipt Date: 20220119
  Transmission Date: 20220423
  Serious: No
  Sender: FDA-Public Use
  Company Number: ENDG21-06695

PATIENT

DRUGS (1)
  1. DOXYCYCLINE [Suspect]
     Active Substance: DOXYCYCLINE
     Indication: Bacterial infection
     Dosage: 100 MG, BID (200 MG TOTAL)
     Route: 065

REACTIONS (6)
  - Headache [Recovering/Resolving]
  - Abdominal pain upper [Recovered/Resolved]
  - Vitreous floaters [Recovered/Resolved]
  - Tinnitus [Recovering/Resolving]
  - Product substitution issue [Recovering/Resolving]
  - Product measured potency issue [Recovering/Resolving]

NARRATIVE: CASE EVENT DATE: 20210101
